FAERS Safety Report 7882303-1 (Version None)
Quarter: 2011Q4

REPORT INFORMATION
  Report Type: 
  Country: None (occurrence: None)
  Receive Date: 20111101
  Receipt Date: 20110613
  Transmission Date: 20120403
  Serious: No
  Sender: FDA-Public Use
  Company Number: US-AMGEN-USASP2011030247

PATIENT
  Age: 64 Year
  Sex: Female

DRUGS (3)
  1. ENBREL [Suspect]
     Indication: RHEUMATOID ARTHRITIS
     Dosage: 50 MG, QWK
     Dates: start: 20110531
  2. CELLCEPT [Concomitant]
     Dosage: 2 MG, Q12H
     Dates: start: 20110501
  3. CYMBALTA [Concomitant]

REACTIONS (10)
  - ASTHENIA [None]
  - OROPHARYNGEAL PAIN [None]
  - ARTHRALGIA [None]
  - CONSTIPATION [None]
  - DRY MOUTH [None]
  - LIBIDO DECREASED [None]
  - DIZZINESS [None]
  - MUSCLE FATIGUE [None]
  - HEADACHE [None]
  - INSOMNIA [None]
